FAERS Safety Report 15567035 (Version 1)
Quarter: 2018Q4

REPORT INFORMATION
  Report Type: Spontaneous
  Country: RU (occurrence: RU)
  Receive Date: 20181030
  Receipt Date: 20181030
  Transmission Date: 20190205
  Serious: Yes (Death, Hospitalization)
  Sender: FDA-Public Use
  Company Number: RU-JNJFOC-20181041293

PATIENT
  Age: 0 Year
  Sex: Male
  Weight: 118 kg

DRUGS (10)
  1. BISOPROLOL [Concomitant]
     Active Substance: BISOPROLOL
     Route: 065
     Dates: start: 20170516
  2. TORASEMIDE [Concomitant]
     Active Substance: TORSEMIDE
     Indication: PULMONARY HYPERTENSION
     Route: 065
     Dates: start: 20170516, end: 20180817
  3. FOSINOPRIL [Concomitant]
     Active Substance: FOSINOPRIL
     Route: 065
     Dates: start: 201705
  4. SUCRALFATE. [Concomitant]
     Active Substance: SUCRALFATE
     Route: 065
     Dates: start: 201705
  5. SILDENAFIL. [Concomitant]
     Active Substance: SILDENAFIL
     Route: 065
     Dates: start: 201710
  6. LASIX [Concomitant]
     Active Substance: FUROSEMIDE
     Route: 065
     Dates: start: 20180817, end: 20180830
  7. SITAGLIPTIN [Concomitant]
     Active Substance: SITAGLIPTIN
     Route: 065
     Dates: start: 2016
  8. XARELTO [Suspect]
     Active Substance: RIVAROXABAN
     Indication: PRODUCT USED FOR UNKNOWN INDICATION
     Route: 048
     Dates: start: 2015
  9. OMEPRAZOLE. [Concomitant]
     Active Substance: OMEPRAZOLE
     Route: 065
     Dates: start: 201705
  10. ALLOPURINOL. [Concomitant]
     Active Substance: ALLOPURINOL
     Indication: PULMONARY HYPERTENSION
     Route: 065
     Dates: start: 20170516

REACTIONS (2)
  - Nephropathy [Fatal]
  - Cardiac failure chronic [Recovered/Resolved]

NARRATIVE: CASE EVENT DATE: 20180817
